FAERS Safety Report 15375966 (Version 1)
Quarter: 2018Q3

REPORT INFORMATION
  Report Type: Spontaneous
  Country: US (occurrence: US)
  Receive Date: 20180912
  Receipt Date: 20180912
  Transmission Date: 20181010
  Serious: Yes (Other)
  Sender: FDA-Public Use
  Company Number: US-GLAXOSMITHKLINE-US2018160839

PATIENT
  Sex: Female

DRUGS (1)
  1. BENLYSTA [Suspect]
     Active Substance: BELIMUMAB
     Indication: PRODUCT USED FOR UNKNOWN INDICATION
     Dosage: 200 MG, WE
     Route: 058

REACTIONS (8)
  - Rotator cuff syndrome [Recovered/Resolved with Sequelae]
  - Ankle operation [Recovered/Resolved with Sequelae]
  - Upper limb fracture [Recovered/Resolved with Sequelae]
  - Rotator cuff repair [Recovered/Resolved with Sequelae]
  - Joint surgery [Recovered/Resolved with Sequelae]
  - Limb operation [Recovered/Resolved with Sequelae]
  - Ankle fracture [Unknown]
  - Infection prophylaxis [Unknown]
